FAERS Safety Report 19649310 (Version 1)
Quarter: 2021Q3

REPORT INFORMATION
  Report Type: Spontaneous
  Country: AU (occurrence: AU)
  Receive Date: 20210802
  Receipt Date: 20210802
  Transmission Date: 20211014
  Serious: Yes (Life-Threatening, Other)
  Sender: FDA-Public Use
  Company Number: AU-BRISTOL-MYERS SQUIBB COMPANY-BMS-2021-071614

PATIENT
  Sex: Female

DRUGS (1)
  1. HYDREA [Suspect]
     Active Substance: HYDROXYUREA
     Indication: PLATELET COUNT INCREASED
     Dosage: UNK
     Route: 065

REACTIONS (9)
  - Sensory loss [Unknown]
  - Suicidal ideation [Unknown]
  - Alopecia [Unknown]
  - Amnesia [Unknown]
  - Platelet count increased [Unknown]
  - Fatigue [Unknown]
  - Confusional state [Unknown]
  - Rash macular [Unknown]
  - Depression [Unknown]
